FAERS Safety Report 10870464 (Version 2)
Quarter: 2015Q1

REPORT INFORMATION
  Report Type: Spontaneous
  Country: IT (occurrence: IT)
  Receive Date: 20150226
  Receipt Date: 20150227
  Transmission Date: 20150721
  Serious: Yes (Hospitalization)
  Sender: FDA-Public Use
  Company Number: IT-ROCHE-1543150

PATIENT
  Age: 28 Year
  Sex: Male

DRUGS (3)
  1. MABTHERA [Suspect]
     Active Substance: RITUXIMAB
     Indication: BURKITT^S LYMPHOMA
     Dosage: 500 MG 1 VIAL OF  50 ML
     Route: 042
     Dates: start: 20150113, end: 20150113
  2. METHOTREXATE [Suspect]
     Active Substance: METHOTREXATE
     Indication: BURKITT^S LYMPHOMA
     Dosage: 25 MG/ML SOLUTION FOR INJECTION
     Route: 042
     Dates: start: 20150110, end: 20150110
  3. CYTARABINE. [Suspect]
     Active Substance: CYTARABINE
     Indication: BURKITT^S LYMPHOMA
     Dosage: 1 G/10 ML SOLUTION FOR INJECTION
     Route: 042
     Dates: start: 20150111, end: 20150112

REACTIONS (2)
  - Pneumonitis [Recovering/Resolving]
  - Febrile neutropenia [Recovering/Resolving]

NARRATIVE: CASE EVENT DATE: 20150119
